FAERS Safety Report 5216114-2 (Version None)
Quarter: 2007Q1

REPORT INFORMATION
  Report Type: 
  Country: None (occurrence: None)
  Receive Date: 20070123
  Receipt Date: 20070122
  Transmission Date: 20070707
  Serious: Yes (Other)
  Sender: FDA-Public Use
  Company Number: ES-BRISTOL-MYERS SQUIBB COMPANY-13650791

PATIENT
  Age: 37 Year
  Sex: Male

DRUGS (4)
  1. METHOTREXATE [Suspect]
     Indication: ANKYLOSING SPONDYLITIS
  2. INFLIXIMAB [Suspect]
     Indication: ANKYLOSING SPONDYLITIS
  3. PREDNISONE TAB [Suspect]
     Indication: ANKYLOSING SPONDYLITIS
  4. NONSTEROIDAL ANTI-INFLAMMATORY [Concomitant]

REACTIONS (3)
  - ANAEMIA [None]
  - GASTROINTESTINAL HAEMORRHAGE [None]
  - KAPOSI'S SARCOMA [None]
